FAERS Safety Report 9522134 (Version 1)
Quarter: 2013Q3

REPORT INFORMATION
  Report Type: Spontaneous
  Country: FR (occurrence: FR)
  Receive Date: 20130913
  Receipt Date: 20130913
  Transmission Date: 20140515
  Serious: Yes (Other)
  Sender: FDA-Public Use
  Company Number: FR-PFIZER INC-2013257798

PATIENT
  Age: 64 Year
  Sex: Female

DRUGS (11)
  1. VFEND [Suspect]
     Indication: ASPERGILLUS INFECTION
     Dosage: UNK
     Route: 041
     Dates: start: 20111128, end: 20111207
  2. CICLOSPORIN [Concomitant]
     Route: 041
  3. ROVALCYTE [Concomitant]
     Route: 048
  4. SPECIAFOLDINE [Concomitant]
     Route: 048
  5. TAHOR [Concomitant]
     Route: 048
  6. INEXIUM [Concomitant]
     Route: 041
  7. TRIFLUCAN [Concomitant]
     Route: 041
  8. CORTANCYL [Concomitant]
     Route: 048
  9. LYRICA [Concomitant]
     Route: 048
  10. INSULIN [Concomitant]
     Route: 058
  11. LOVENOX [Concomitant]
     Route: 058

REACTIONS (3)
  - Disturbance in attention [Recovered/Resolved]
  - Toxic encephalopathy [Recovered/Resolved]
  - Hallucination [Recovered/Resolved]
